FAERS Safety Report 9002324 (Version 1)
Quarter: 2013Q1

REPORT INFORMATION
  Report Type: Spontaneous
  Country: US (occurrence: US)
  Receive Date: 20130107
  Receipt Date: 20130107
  Transmission Date: 20140127
  Serious: Yes (Other)
  Sender: FDA-Public Use
  Company Number: PHEH2013US000500

PATIENT
  Age: 61 Year
  Sex: Female

DRUGS (8)
  1. AFINITOR [Suspect]
     Indication: TUBEROUS SCLEROSIS
     Dosage: 10 MG, DAILY
     Route: 048
  2. ADDERALL [Concomitant]
  3. DILANTIN                                /CAN/ [Concomitant]
  4. COZAAR [Concomitant]
  5. LIPITOR [Concomitant]
  6. TOPROL [Concomitant]
  7. VITAMIN D3 [Concomitant]
  8. ZANTAC [Concomitant]

REACTIONS (2)
  - Hallucination [Recovered/Resolved]
  - Abnormal dreams [Recovered/Resolved]
